FAERS Safety Report 10262399 (Version 1)
Quarter: 2014Q2

REPORT INFORMATION
  Report Type: Spontaneous
  Country: AU (occurrence: AU)
  Receive Date: 20140626
  Receipt Date: 20140626
  Transmission Date: 20141212
  Serious: Yes (Other)
  Sender: FDA-Public Use
  Company Number: AU-NAPPMUNDI-GBR-2014-0018850

PATIENT
  Age: 36 Year
  Sex: Male

DRUGS (2)
  1. OXYCONTIN TABLETS [Suspect]
     Indication: PAIN
     Dosage: UNK
     Route: 048
  2. PANADOL                            /00020001/ [Concomitant]
     Dosage: 2 DF, DAILY

REACTIONS (2)
  - Drug dependence [Unknown]
  - Aggression [Unknown]
